FAERS Safety Report 4500923-9 (Version None)
Quarter: 2004Q4

REPORT INFORMATION
  Report Type: 
  Country: None (occurrence: None)
  Receive Date: 20041115
  Receipt Date: 20040817
  Transmission Date: 20050328
  Serious: Yes (Other)
  Sender: FDA-Public Use
  Company Number: US-ROCHE-378032

PATIENT
  Age: 49 Year
  Sex: Male

DRUGS (5)
  1. PEGASYS [Suspect]
     Indication: DRUG USE FOR UNKNOWN INDICATION
     Route: 065
  2. OXYCONTIN [Interacting]
     Indication: DRUG USE FOR UNKNOWN INDICATION
     Route: 065
  3. MORPHINE SULFATE [Interacting]
     Route: 048
     Dates: start: 20040815
  4. MORPHINE SULFATE [Interacting]
     Route: 048
     Dates: start: 20040815
  5. COPEGUS [Suspect]
     Indication: DRUG USE FOR UNKNOWN INDICATION
     Route: 065

REACTIONS (1)
  - DRUG INTERACTION [None]
